FAERS Safety Report 24263130 (Version 1)
Quarter: 2024Q3

REPORT INFORMATION
  Report Type: Spontaneous
  Country: NO (occurrence: NO)
  Receive Date: 20240829
  Receipt Date: 20240829
  Transmission Date: 20241016
  Serious: Yes (Other)
  Sender: BAYER
  Company Number: NO-BAYER-2024A107438

PATIENT
  Age: 30 Year
  Sex: Female

DRUGS (1)
  1. KYLEENA [Suspect]
     Active Substance: LEVONORGESTREL
     Dosage: 17.5?G/DAY
     Route: 015
     Dates: start: 202201, end: 202403

REACTIONS (5)
  - Suicidal ideation [None]
  - Menstruation delayed [None]
  - Depression [None]
  - Irritability [None]
  - Anxiety [None]

NARRATIVE: CASE EVENT DATE: 20220101
